FAERS Safety Report 14189804 (Version 1)
Quarter: 2017Q4

REPORT INFORMATION
  Report Type: Spontaneous
  Country: US (occurrence: US)
  Receive Date: 20171115
  Receipt Date: 20171115
  Transmission Date: 20180321
  Serious: No
  Sender: FDA-Public Use
  Company Number: US-PFIZER INC-2017487127

PATIENT
  Age: 34 Year
  Sex: Male
  Weight: 49.9 kg

DRUGS (1)
  1. VIAGRA [Suspect]
     Active Substance: SILDENAFIL CITRATE
     Dosage: UNK

REACTIONS (4)
  - Incorrect route of drug administration [Unknown]
  - Feeling abnormal [Unknown]
  - Expired product administered [Unknown]
  - Penis disorder [Unknown]
